FAERS Safety Report 9189958 (Version 1)
Quarter: 2013Q1

REPORT INFORMATION
  Report Type: Spontaneous
  Country: GB (occurrence: None)
  Receive Date: 20130322
  Receipt Date: 20130322
  Transmission Date: 20140127
  Serious: Yes (Other)
  Sender: FDA-Public Use
  Company Number: AE-2013/0193

PATIENT
  Age: 46 Year
  Sex: Female

DRUGS (26)
  1. DAUNORUBICIN [Suspect]
     Indication: ACUTE MYELOID LEUKAEMIA
     Dates: start: 20110819, end: 20110828
  2. DAUNORUBICIN [Suspect]
     Indication: MYELODYSPLASTIC SYNDROME
     Dates: start: 20110819, end: 20110828
  3. AMBISOME [Suspect]
     Route: 042
     Dates: start: 20110831, end: 20110831
  4. CYTARABINE [Suspect]
     Indication: ACUTE MYELOID LEUKAEMIA
     Dates: start: 20110819, end: 20110828
  5. CYTARABINE [Suspect]
     Indication: MYELODYSPLASTIC SYNDROME
     Dates: start: 20110819, end: 20110828
  6. ETOPOSIDE [Suspect]
     Indication: ACUTE MYELOID LEUKAEMIA
     Dates: start: 20110819, end: 20110828
  7. ETOPOSIDE [Suspect]
     Indication: MYELODYSPLASTIC SYNDROME
     Dates: start: 20110819, end: 20110828
  8. GEMTUZUMAB OZOGAMICIN [Suspect]
     Indication: ACUTE MYELOID LEUKAEMIA
     Dates: start: 20110819, end: 20110828
  9. GEMTUZUMAB OZOGAMICIN [Suspect]
     Indication: MYELODYSPLASTIC SYNDROME
     Dates: start: 20110819, end: 20110828
  10. MEROPENEM [Suspect]
     Route: 042
     Dates: start: 20110905, end: 20110910
  11. NORETHISTERONE (NORETHISTERONE) [Suspect]
     Dates: start: 20110818
  12. TAZOCIN [Suspect]
     Route: 042
     Dates: start: 20110822, end: 20110825
  13. VANCOMYCIN [Suspect]
     Dates: start: 20110904, end: 20110909
  14. ACICLOVIR [Concomitant]
  15. ALLOPURINOL [Concomitant]
  16. CODEINE [Concomitant]
  17. CYCLIZINE [Concomitant]
  18. DOCUSATE SODIUM [Concomitant]
  19. LORAZEPAM [Concomitant]
  20. OMEPRAZOLE [Concomitant]
  21. ONDANSETRON [Concomitant]
  22. ORAMORPH [Concomitant]
  23. PARACETAMOL [Concomitant]
  24. ANTI-D IMMUNOGLOBULIN [Concomitant]
  25. RANITIDINE [Concomitant]
  26. TRANEXAMIC ACID [Concomitant]

REACTIONS (2)
  - Platelet count increased [None]
  - Alanine aminotransferase increased [None]
